FAERS Safety Report 8333174-0 (Version None)
Quarter: 2012Q1

REPORT INFORMATION
  Report Type: 
  Country: None (occurrence: None)
  Receive Date: 20120327
  Receipt Date: 20110314
  Transmission Date: 20120608
  Serious: Yes (Death, Hospitalization)
  Sender: FDA-Public Use
  Company Number: PHHY2011US15134

PATIENT
  Age: 90 Year
  Sex: Female

DRUGS (4)
  1. GLEEVEC [Suspect]
     Indication: CHRONIC MYELOID LEUKAEMIA (IN REMISSION)
     Dosage: 400 MG, QD, ORAL
     Route: 048
     Dates: start: 20021107
  2. METOPROLOL TARTRATE [Concomitant]
  3. THALOMID [Concomitant]
  4. PROCID (PROBENECID) [Concomitant]

REACTIONS (2)
  - CHRONIC MYELOID LEUKAEMIA [None]
  - ABDOMINAL DISCOMFORT [None]
